FAERS Safety Report 24896157 (Version 3)
Quarter: 2025Q1

REPORT INFORMATION
  Report Type: Spontaneous
  Country: US (occurrence: US)
  Receive Date: 20250128
  Receipt Date: 20250220
  Transmission Date: 20250409
  Serious: No
  Sender: PFIZER
  Company Number: US-PFIZER INC-202500018668

PATIENT
  Age: 76 Year
  Sex: Male
  Weight: 102.04 kg

DRUGS (14)
  1. DOCETAXEL [Suspect]
     Active Substance: DOCETAXEL
     Indication: Prostate cancer metastatic
     Dosage: 170 MG, EVERY 3 WEEKS
     Route: 042
     Dates: start: 20240809, end: 20250124
  2. XARELTO [Concomitant]
     Active Substance: RIVAROXABAN
     Indication: Atrial fibrillation
     Dosage: 20 MG, DAILY
     Dates: start: 20220901
  3. LEVOTHYROXINE [Concomitant]
     Active Substance: LEVOTHYROXINE
     Indication: Hypothyroidism
     Dosage: 25 UG, DAILY
     Dates: start: 20180801
  4. CALCIUM [Concomitant]
     Active Substance: CALCIUM
     Indication: Mineral supplementation
     Dosage: 2400 MG, DAILY
     Dates: start: 20160901
  5. LEUPROLIDE ACETATE [Concomitant]
     Active Substance: LEUPROLIDE ACETATE
     Dosage: 22.5 MG, EVERY 3 MONTHS
     Dates: start: 20170901
  6. DENOSUMAB [Concomitant]
     Active Substance: DENOSUMAB
     Dates: start: 20240708
  7. PREDNISONE [Concomitant]
     Active Substance: PREDNISONE
     Dosage: 5 MG, DAILY
     Dates: start: 20241004
  8. DEXAMETHASONE [Concomitant]
     Active Substance: DEXAMETHASONE
     Dosage: 8 MG, EVERY 3 WEEKS
     Dates: start: 20240809
  9. DEXAMETHASONE [Concomitant]
     Active Substance: DEXAMETHASONE
     Dosage: 0.25 MG, EVERY 3 WEEKS
     Dates: start: 20240809
  10. PEGFILGRASTIM [Concomitant]
     Active Substance: PEGFILGRASTIM
     Dosage: 6 MG, EVERY 3 WEEKS
     Dates: start: 20240809
  11. VITAMIN D3 [Concomitant]
     Active Substance: CHOLECALCIFEROL
     Indication: Mineral supplementation
     Dosage: 50 MG, DAILY
  12. VITAMINS [Concomitant]
     Active Substance: VITAMINS
     Dosage: UNK, DAILY (1 TABLET)
  13. ZOMETA [Concomitant]
     Active Substance: ZOLEDRONIC ACID
     Dosage: UNK, EVERY 3 MONTHS (4 MG/5 ML)
  14. CLARIDIN [Concomitant]
     Dosage: UNK, DAILY (1 TABLET DAILY FOR 5 DAYS AFTER CHEMO)

REACTIONS (1)
  - Neoplasm progression [Not Recovered/Not Resolved]

NARRATIVE: CASE EVENT DATE: 20250124
